FAERS Safety Report 10578950 (Version 2)
Quarter: 2014Q4

REPORT INFORMATION
  Report Type: Report from Study
  Country: US (occurrence: US)
  Receive Date: 20141112
  Receipt Date: 20141204
  Transmission Date: 20150529
  Serious: Yes (Hospitalization, Other)
  Sender: FDA-Public Use
  Company Number: US-BAYER-2014-166567

PATIENT
  Age: 60 Year
  Sex: Female

DRUGS (3)
  1. NEXAVAR [Suspect]
     Active Substance: SORAFENIB
     Indication: HEPATOCELLULAR CARCINOMA
     Dosage: 400 MG, BID
     Route: 048
     Dates: start: 201409
  2. NEXAVAR [Suspect]
     Active Substance: SORAFENIB
     Indication: HEPATOCELLULAR CARCINOMA
     Dosage: 400 MG, BID
     Route: 048
     Dates: end: 201411
  3. NEXAVAR [Suspect]
     Active Substance: SORAFENIB
     Indication: HEPATOCELLULAR CARCINOMA
     Dosage: 200 MG, BID
     Route: 048
     Dates: start: 201410, end: 20141023

REACTIONS (4)
  - Nausea [None]
  - Asthenia [None]
  - Confusional state [None]
  - Fluid retention [None]

NARRATIVE: CASE EVENT DATE: 20141022
